FAERS Safety Report 4400789-1 (Version None)
Quarter: 2004Q3

REPORT INFORMATION
  Report Type: 
  Country: None (occurrence: None)
  Receive Date: 20040907
  Receipt Date: 20030609
  Transmission Date: 20050211
  Serious: Yes (Hospitalization, Other)
  Sender: FDA-Public Use
  Company Number: US-BRISTOL-MYERS SQUIBB COMPANY-12296612

PATIENT
  Age: 86 Year
  Sex: Male
  Weight: 63 kg

DRUGS (4)
  1. COUMADIN [Suspect]
     Indication: THROMBOSIS
     Route: 048
     Dates: start: 20021001
  2. LORTAB [Concomitant]
  3. RESTORIL [Concomitant]
  4. SINEMET [Concomitant]
     Indication: POLYNEUROPATHY
     Dosage: DOES: 2 TABLETS ON 13 FEB 03 (ONE TIME ONLY).

REACTIONS (6)
  - ALTERED VISUAL DEPTH PERCEPTION [None]
  - ASTHENIA [None]
  - CEREBROVASCULAR ACCIDENT [None]
  - DEEP VEIN THROMBOSIS [None]
  - DISORIENTATION [None]
  - EPISTAXIS [None]
